FAERS Safety Report 23187506 (Version 8)
Quarter: 2024Q3

REPORT INFORMATION
  Report Type: Report from Study
  Country: MX (occurrence: MX)
  Receive Date: 20231115
  Receipt Date: 20240904
  Transmission Date: 20241017
  Serious: Yes (Life-Threatening, Hospitalization, Other)
  Sender: NOVARTIS
  Company Number: MX-002147023-NVSC2023MX220905

PATIENT
  Age: 59 Year
  Sex: Female
  Weight: 66 kg

DRUGS (9)
  1. KISQALI [Suspect]
     Active Substance: RIBOCICLIB
     Indication: Breast cancer
     Dosage: 400 MG, QD
     Route: 048
     Dates: start: 20230919
  2. KISQALI [Suspect]
     Active Substance: RIBOCICLIB
     Dosage: UNK
     Route: 048
  3. KISQALI [Suspect]
     Active Substance: RIBOCICLIB
     Dosage: 3 DOSAGE FORM, QD
     Route: 048
  4. KISQALI [Suspect]
     Active Substance: RIBOCICLIB
     Dosage: 2 DOSAGE FORM
     Route: 048
     Dates: end: 202403
  5. KISQALI [Suspect]
     Active Substance: RIBOCICLIB
     Dosage: 2 DOSAGE FORM, QD
     Route: 048
     Dates: end: 20240604
  6. KISQALI [Suspect]
     Active Substance: RIBOCICLIB
     Dosage: 400 MG (2 OF 200 MG), QD (IN THE MORNING)
     Route: 048
     Dates: start: 20240604, end: 20240625
  7. KISQALI [Suspect]
     Active Substance: RIBOCICLIB
     Dosage: UNK
     Route: 065
  8. LETROZOLE [Suspect]
     Active Substance: LETROZOLE
     Indication: Product used for unknown indication
     Dosage: 1 DOSAGE FORM, QD (AT NIGHT)
     Route: 065
  9. LETROZOLE [Suspect]
     Active Substance: LETROZOLE
     Dosage: 2.5 MG (1 AT NIGHT)
     Route: 065

REACTIONS (65)
  - Platelet count decreased [Not Recovered/Not Resolved]
  - Lymphocyte count decreased [Not Recovered/Not Resolved]
  - Neutrophil count decreased [Not Recovered/Not Resolved]
  - Lymphocyte percentage increased [Not Recovered/Not Resolved]
  - White blood cell count decreased [Not Recovered/Not Resolved]
  - Neoplasm [Unknown]
  - Abdominal pain upper [Unknown]
  - Diarrhoea [Recovering/Resolving]
  - Dehydration [Recovering/Resolving]
  - Feeling abnormal [Unknown]
  - Neoplasm malignant [Unknown]
  - Blood glucose abnormal [Unknown]
  - Metastases to bone [Not Recovered/Not Resolved]
  - Visual impairment [Not Recovered/Not Resolved]
  - Thyroid neoplasm [Not Recovered/Not Resolved]
  - Lung neoplasm [Unknown]
  - Bone lesion [Unknown]
  - Decreased immune responsiveness [Not Recovered/Not Resolved]
  - Blood pressure abnormal [Unknown]
  - Poor quality sleep [Unknown]
  - Epigastric discomfort [Unknown]
  - Weight decreased [Not Recovered/Not Resolved]
  - Headache [Unknown]
  - Asthenia [Unknown]
  - Vision blurred [Unknown]
  - Bone pain [Unknown]
  - Eye pain [Unknown]
  - Fatigue [Unknown]
  - Pain in extremity [Unknown]
  - Abdominal discomfort [Unknown]
  - Musculoskeletal chest pain [Unknown]
  - Gait disturbance [Unknown]
  - Depression [Unknown]
  - Hypertension [Unknown]
  - Insomnia [Unknown]
  - Stress [Unknown]
  - Malaise [Unknown]
  - Tooth deposit [Unknown]
  - Tooth disorder [Unknown]
  - Inappropriate schedule of product administration [Unknown]
  - Eructation [Unknown]
  - Infection [Unknown]
  - General physical health deterioration [Not Recovered/Not Resolved]
  - Mean cell volume abnormal [Unknown]
  - Red cell distribution width abnormal [Unknown]
  - Mean platelet volume abnormal [Unknown]
  - Product availability issue [Unknown]
  - Drug intolerance [Unknown]
  - Bacillus infection [Unknown]
  - Anger [Unknown]
  - Frustration tolerance decreased [Unknown]
  - Discomfort [Recovered/Resolved]
  - Tension [Unknown]
  - Pyrexia [Recovered/Resolved]
  - Intercepted product dispensing error [Unknown]
  - Pain [Unknown]
  - Skin discolouration [Unknown]
  - Breath odour [Unknown]
  - Anxiety [Unknown]
  - Monocyte count decreased [Not Recovered/Not Resolved]
  - Blood creatinine increased [Not Recovered/Not Resolved]
  - Basophil percentage increased [Not Recovered/Not Resolved]
  - Limb mass [Unknown]
  - Hunger [Unknown]
  - Middle insomnia [Unknown]

NARRATIVE: CASE EVENT DATE: 20240301
